FAERS Safety Report 26125172 (Version 1)
Quarter: 2025Q4

REPORT INFORMATION
  Report Type: Spontaneous
  Country: US (occurrence: US)
  Receive Date: 20251205
  Receipt Date: 20251205
  Transmission Date: 20260118
  Serious: Yes (Death, Hospitalization, Other)
  Sender: LUPIN
  Company Number: US-LUPIN PHARMACEUTICALS INC.-2025-02752

PATIENT
  Age: 21 Year
  Sex: Female

DRUGS (3)
  1. METFORMIN [Suspect]
     Active Substance: METFORMIN HYDROCHLORIDE
     Indication: Suicide attempt
     Dosage: UNK, INGESTION OF PILLS FROM TWO UNLABELED CONTAINERS LATER IDENTIFIED AS METFORMIN
  2. HYDROXOCOBALAMIN [Suspect]
     Active Substance: HYDROXOCOBALAMIN
     Indication: Acidosis
     Dosage: UNK
     Route: 065
  3. HYDROXOCOBALAMIN [Suspect]
     Active Substance: HYDROXOCOBALAMIN
     Indication: Shock

REACTIONS (9)
  - Intentional overdose [Fatal]
  - Shock [Fatal]
  - Acidosis [Fatal]
  - Cardiac arrest [Fatal]
  - Completed suicide [Fatal]
  - Hypothermia [Unknown]
  - Hypoglycaemia [Unknown]
  - Body fluid analysis [Unknown]
  - Laboratory test abnormal [Unknown]
